FAERS Safety Report 7561251-0 (Version None)
Quarter: 2011Q2

REPORT INFORMATION
  Report Type: 
  Country: None (occurrence: None)
  Receive Date: 20110621
  Receipt Date: 20110404
  Transmission Date: 20111010
  Serious: No
  Sender: FDA-Public Use
  Company Number: US-ASTRAZENECA-2011SE18903

PATIENT
  Age: 80 Year
  Sex: Female

DRUGS (4)
  1. PULMICORT RESPULES [Suspect]
     Route: 055
  2. PULMICORT RESPULES [Suspect]
     Route: 055
  3. PULMICORT RESPULES [Suspect]
     Route: 055
  4. PULMICORT RESPULES [Suspect]
     Route: 055
     Dates: start: 20110101

REACTIONS (2)
  - PNEUMONIA [None]
  - OFF LABEL USE [None]
